FAERS Safety Report 9011104 (Version 1)
Quarter: 2013Q1

REPORT INFORMATION
  Report Type: Spontaneous
  Country: US (occurrence: US)
  Receive Date: 20130109
  Receipt Date: 20130109
  Transmission Date: 20140127
  Serious: Yes (Death)
  Sender: FDA-Public Use
  Company Number: US-PFIZER INC-2013005730

PATIENT
  Age: 63 Year
  Sex: Female

DRUGS (8)
  1. VENLAFAXINE HYDROCHLORIDE [Suspect]
  2. BUPROPION [Suspect]
  3. ACETAMINOPHEN W/HYDROCODONE BITARTRATE [Suspect]
  4. ETHANOL [Suspect]
  5. CLONAZEPAM [Suspect]
  6. ESZOPICLONE [Suspect]
  7. ACETAMINOPHEN [Suspect]
  8. TOPIRAMATE [Suspect]

REACTIONS (1)
  - Completed suicide [Fatal]
